FAERS Safety Report 8484022-X (Version None)
Quarter: 2012Q2

REPORT INFORMATION
  Report Type: 
  Country: None (occurrence: None)
  Receive Date: 20120627
  Receipt Date: 20120627
  Transmission Date: 20120825
  Serious: Yes (Hospitalization)
  Sender: FDA-Public Use
  Company Number: None

PATIENT
  Age: 57 Year
  Sex: Male
  Weight: 68.2 kg

DRUGS (1)
  1. LISINOPRIL [Suspect]
     Dates: start: 20120428

REACTIONS (2)
  - BACTERIAL INFECTION [None]
  - EPIGLOTTITIS [None]
